FAERS Safety Report 9202100 (Version 1)
Quarter: 2013Q1

REPORT INFORMATION
  Report Type: Spontaneous
  Country: US (occurrence: US)
  Receive Date: 20130327
  Receipt Date: 20130327
  Transmission Date: 20140127
  Serious: Yes (Other)
  Sender: FDA-Public Use
  Company Number: US-ELI_LILLY_AND_COMPANY-US201303006179

PATIENT
  Sex: Male

DRUGS (3)
  1. CYMBALTA [Suspect]
     Indication: NEURALGIA
     Dosage: 60 MG, QD
     Dates: start: 2010
  2. CYMBALTA [Suspect]
     Dosage: 30 MG, QD
  3. ZOLOFT [Concomitant]

REACTIONS (7)
  - Loss of consciousness [Unknown]
  - Suicidal ideation [Recovered/Resolved]
  - Diabetes mellitus [Unknown]
  - Drug withdrawal syndrome [Not Recovered/Not Resolved]
  - Drug withdrawal headache [Not Recovered/Not Resolved]
  - Paraesthesia [Not Recovered/Not Resolved]
  - Fall [Unknown]
